FAERS Safety Report 23407895 (Version 2)
Quarter: 2024Q3

REPORT INFORMATION
  Report Type: Spontaneous
  Country: US (occurrence: US)
  Receive Date: 20240117
  Receipt Date: 20240814
  Transmission Date: 20241016
  Serious: Yes (Hospitalization)
  Sender: RECORDATI
  Company Number: US-RECORDATI RARE DISEASE INC.-2024000204

PATIENT

DRUGS (1)
  1. PANHEMATIN [Suspect]
     Active Substance: HEMIN
     Indication: Porphyria
     Dosage: UNK
     Route: 042
     Dates: start: 20240109

REACTIONS (4)
  - Pain [Unknown]
  - Generalised oedema [Unknown]
  - Testicular swelling [Not Recovered/Not Resolved]
  - Off label use [Recovered/Resolved]

NARRATIVE: CASE EVENT DATE: 20240101
